FAERS Safety Report 24804307 (Version 2)
Quarter: 2025Q1

REPORT INFORMATION
  Report Type: Other
  Country: CO (occurrence: CO)
  Receive Date: 20250103
  Receipt Date: 20250109
  Transmission Date: 20250409
  Serious: Yes (Hospitalization)
  Sender: EMD SERONO INC
  Company Number: CO-Merck Healthcare KGaA-2025000193

PATIENT
  Age: 29 Year
  Sex: Female

DRUGS (2)
  1. METFORMIN [Suspect]
     Active Substance: METFORMIN HYDROCHLORIDE
     Indication: Polycystic ovarian syndrome
     Dosage: STOP DATE: 2020
     Dates: start: 202007
  2. ETHINYLESTRADIOL AND CYPROTERONE ACETATE [Concomitant]
     Indication: Polycystic ovarian syndrome

REACTIONS (1)
  - Pancreatitis necrotising [Recovered/Resolved]

NARRATIVE: CASE EVENT DATE: 20200101
